FAERS Safety Report 17538150 (Version 1)
Quarter: 2020Q1

REPORT INFORMATION
  Report Type: Spontaneous
  Country: US (occurrence: US)
  Receive Date: 20200313
  Receipt Date: 20200313
  Transmission Date: 20200409
  Serious: No
  Sender: FDA-Public Use
  Company Number: US-ORION CORPORATION ORION PHARMA-ENT 2019-0082

PATIENT
  Sex: Female

DRUGS (2)
  1. ENTACAPONE (TRADE NAME UNKNOWN) [Suspect]
     Active Substance: ENTACAPONE
     Indication: PRODUCT USED FOR UNKNOWN INDICATION
     Route: 048
  2. ENTACAPONE (TRADE NAME UNKNOWN) [Suspect]
     Active Substance: ENTACAPONE
     Route: 048

REACTIONS (1)
  - Diarrhoea [Not Recovered/Not Resolved]
